FAERS Safety Report 13054242 (Version 1)
Quarter: 2016Q4

REPORT INFORMATION
  Report Type: Spontaneous
  Country: US (occurrence: US)
  Receive Date: 20161222
  Receipt Date: 20161222
  Transmission Date: 20170207
  Serious: Yes (Hospitalization)
  Sender: FDA-Public Use
  Company Number: None

PATIENT

DRUGS (1)
  1. PROGRAF [Suspect]
     Active Substance: TACROLIMUS\TACROLIMUS ANHYDROUS
     Indication: RENAL TRANSPLANT
     Route: 048

REACTIONS (5)
  - Pneumonia [None]
  - Immunosuppression [None]
  - Bacterial test positive [None]
  - Urinary tract infection [None]
  - Sepsis [None]

NARRATIVE: CASE EVENT DATE: 20160820
